FAERS Safety Report 6271736-5 (Version None)
Quarter: 2009Q3

REPORT INFORMATION
  Report Type: 
  Country: None (occurrence: None)
  Receive Date: 20090716
  Receipt Date: 20090716
  Transmission Date: 20100115
  Serious: Yes (Hospitalization)
  Sender: FDA-Public Use
  Company Number: None

PATIENT
  Sex: Female
  Weight: 62.1428 kg

DRUGS (2)
  1. PEGASYS [Suspect]
     Indication: HEPATITIS C
     Dosage: 180 MCG/ 0.5ML WEEKLY SQ
     Route: 058
     Dates: start: 20090601, end: 20090701
  2. RIBAVIRIN [Suspect]
     Indication: HEPATITIS C
     Dosage: 200 MG 2 PO AM/ 3PO PM PO
     Route: 048
     Dates: start: 20090601, end: 20090701

REACTIONS (6)
  - ANAEMIA [None]
  - ASTHENIA [None]
  - CONVULSION [None]
  - DIZZINESS [None]
  - FALL [None]
  - GAIT DISTURBANCE [None]
